FAERS Safety Report 25816114 (Version 1)
Quarter: 2025Q3

REPORT INFORMATION
  Report Type: Spontaneous
  Country: US (occurrence: US)
  Receive Date: 20250918
  Receipt Date: 20250918
  Transmission Date: 20251021
  Serious: No
  Sender: ADVANZ PHARMA
  Company Number: US-ADVANZ PHARMA-202509008301

PATIENT

DRUGS (10)
  1. HYDROXYCHLOROQUINE SULFATE [Suspect]
     Active Substance: HYDROXYCHLOROQUINE SULFATE
     Indication: Product used for unknown indication
  2. PILOCARPINE [Concomitant]
     Active Substance: PILOCARPINE
  3. Alum and magnesium oxide- semethicone [Concomitant]
  4. diphenlhydramine [Concomitant]
  5. Calcium crab-cholecalciferol 600 [Concomitant]
  6. CHOLECALCIFEROL [Concomitant]
     Active Substance: CHOLECALCIFEROL
  7. OPTICROM [Concomitant]
     Active Substance: CROMOLYN SODIUM
  8. NEURONTIN [Concomitant]
     Active Substance: GABAPENTIN
  9. MESTINON [Concomitant]
     Active Substance: PYRIDOSTIGMINE BROMIDE
  10. MINERALS\VITAMINS [Concomitant]
     Active Substance: MINERALS\VITAMINS

REACTIONS (1)
  - Myalgia [Unknown]

NARRATIVE: CASE EVENT DATE: 20120222
